FAERS Safety Report 5870422-0 (Version None)
Quarter: 2008Q3

REPORT INFORMATION
  Report Type: 
  Country: None (occurrence: None)
  Receive Date: 20080904
  Receipt Date: 20080529
  Transmission Date: 20090109
  Serious: No
  Sender: FDA-Public Use
  Company Number: US-BRISTOL-MYERS SQUIBB COMPANY-14190805

PATIENT
  Age: 57 Year
  Sex: Male
  Weight: 118 kg

DRUGS (1)
  1. DEFINITY [Suspect]
     Dosage: DEFINITY 1.5CC IN 8.5CC OF NORMAL SALINE;IV NEPLOCK
     Route: 042
     Dates: start: 20080513

REACTIONS (1)
  - CHEST DISCOMFORT [None]
